FAERS Safety Report 6978762-9 (Version None)
Quarter: 2010Q3

REPORT INFORMATION
  Report Type: 
  Country: None (occurrence: None)
  Receive Date: 20100913
  Receipt Date: 20100909
  Transmission Date: 20110219
  Serious: Yes (Other)
  Sender: FDA-Public Use
  Company Number: AU-ROCHE-725970

PATIENT

DRUGS (1)
  1. CEFTRIAXONE SODIUM [Suspect]
     Indication: PRODUCT USED FOR UNKNOWN INDICATION
     Dosage: FREQUENCY: 1 TIME
     Route: 042
     Dates: start: 20100417, end: 20100417

REACTIONS (3)
  - EYE PRURITUS [None]
  - EYELID OEDEMA [None]
  - PARAESTHESIA ORAL [None]
